FAERS Safety Report 20208520 (Version 2)
Quarter: 2022Q1

REPORT INFORMATION
  Report Type: Spontaneous
  Country: US (occurrence: US)
  Receive Date: 20211220
  Receipt Date: 20220113
  Transmission Date: 20220423
  Serious: Yes (Hospitalization)
  Sender: FDA-Public Use
  Company Number: US-TEVA-2021-US-1989810

PATIENT
  Age: 46 Year
  Sex: Male

DRUGS (1)
  1. WARFARIN [Suspect]
     Active Substance: WARFARIN
     Indication: Venous thrombosis
     Route: 065

REACTIONS (2)
  - Haemorrhagic cholecystitis [Recovered/Resolved]
  - Normochromic normocytic anaemia [Recovering/Resolving]
